FAERS Safety Report 4776570-0 (Version None)
Quarter: 2005Q3

REPORT INFORMATION
  Report Type: 
  Country: None (occurrence: None)
  Receive Date: 20050923
  Receipt Date: 20050913
  Transmission Date: 20060218
  Serious: Yes (Other)
  Sender: FDA-Public Use
  Company Number: PHEH2005US10212

PATIENT
  Age: 85 Year
  Sex: Female

DRUGS (1)
  1. MIACALCIN [Suspect]
     Indication: OSTEOPOROSIS
     Dosage: 200 IU, QD
     Dates: start: 20030101, end: 20050912

REACTIONS (3)
  - EPISTAXIS [None]
  - JOINT SWELLING [None]
  - THROMBOSIS [None]
